FAERS Safety Report 9641731 (Version 3)
Quarter: 2013Q4

REPORT INFORMATION
  Report Type: Spontaneous
  Country: JP (occurrence: JP)
  Receive Date: 20131023
  Receipt Date: 20131118
  Transmission Date: 20140711
  Serious: No
  Sender: FDA-Public Use
  Company Number: JP-009507513-1309JPN014142

PATIENT
  Age: 42 Year
  Sex: Male

DRUGS (3)
  1. JANUVIA TABLETS 50MG [Suspect]
     Indication: DIABETES MELLITUS
     Dosage: 50 MG, 1/1 DAY
     Route: 048
     Dates: start: 20130902, end: 20130920
  2. METHYCOBAL [Concomitant]
     Indication: DIABETIC NEUROPATHY
     Dosage: 500 MICROGRAM, TID
     Route: 048
  3. STARSIS [Concomitant]
     Indication: DIABETES MELLITUS
     Dosage: 90 MG, TID
     Route: 048

REACTIONS (4)
  - Urinary retention [Recovered/Resolved]
  - Decreased appetite [Recovered/Resolved]
  - Constipation [Recovered/Resolved]
  - Bladder catheterisation [Recovered/Resolved]
